FAERS Safety Report 9571592 (Version 1)
Quarter: 2013Q3

REPORT INFORMATION
  Report Type: Spontaneous
  Country: IT (occurrence: None)
  Receive Date: 20130927
  Receipt Date: 20130927
  Transmission Date: 20140515
  Serious: Yes (Other)
  Sender: FDA-Public Use
  Company Number: AUR-APL-2013-07861

PATIENT
  Age: 56 Year
  Sex: Male

DRUGS (1)
  1. AMOXICLLIN+CLAVULANIC ACID (CLAVULANIC ACID, AMOXICILLIN) [Suspect]
     Indication: PYREXIA

REACTIONS (7)
  - Drug ineffective [None]
  - Pneumonia [None]
  - Disorientation [None]
  - Asterixis [None]
  - Pleural effusion [None]
  - Tuberculin test positive [None]
  - Tuberculous pleurisy [None]
